FAERS Safety Report 6564857-0 (Version None)
Quarter: 2010Q1

REPORT INFORMATION
  Report Type: 
  Country: None (occurrence: None)
  Receive Date: 20100201
  Receipt Date: 20100122
  Transmission Date: 20100710
  Serious: Yes (Hospitalization)
  Sender: FDA-Public Use
  Company Number: FR-PFIZER INC-2010009012

PATIENT
  Age: 73 Year
  Sex: Female

DRUGS (3)
  1. AMLOR [Suspect]
     Indication: HYPERTENSION
     Dosage: 5 MG, 1X/DAY
     Route: 048
     Dates: start: 20091207, end: 20091218
  2. RIFADIN [Suspect]
     Dosage: 300 MG, 2X/DAY
     Route: 048
     Dates: start: 20091201, end: 20091216
  3. OFLOCET [Suspect]
     Dosage: 200 MG, 1X/DAY
     Route: 048
     Dates: start: 20091210, end: 20091216

REACTIONS (1)
  - THROMBOCYTOPENIA [None]
